FAERS Safety Report 8994653 (Version 1)
Quarter: 2012Q4

REPORT INFORMATION
  Report Type: Spontaneous
  Country: US (occurrence: None)
  Receive Date: 20121228
  Receipt Date: 20121228
  Transmission Date: 20130627
  Serious: Yes (Death)
  Sender: FDA-Public Use
  Company Number: None

PATIENT
  Age: 88 Year
  Sex: Female
  Weight: 61.2 kg

DRUGS (1)
  1. ENOXAPARIN [Suspect]
     Indication: DRUG THERAPY
     Dosage: 4 DOSES
     Route: 058

REACTIONS (3)
  - Hypotension [None]
  - Cardio-respiratory arrest [None]
  - Abdominal wall haematoma [None]
